FAERS Safety Report 10012095 (Version 1)
Quarter: 2014Q1

REPORT INFORMATION
  Report Type: Spontaneous
  Country: US (occurrence: US)
  Receive Date: 20140312
  Receipt Date: 20140312
  Transmission Date: 20141002
  Serious: Yes (Other)
  Sender: FDA-Public Use
  Company Number: US-009507513-1403USA002915

PATIENT
  Sex: Female

DRUGS (2)
  1. FOSAMAX [Suspect]
     Indication: OSTEOPOROSIS
     Dosage: UNK
     Route: 048
     Dates: start: 2000, end: 2008
  2. FOSAMAX [Suspect]
     Indication: OSTEOPENIA

REACTIONS (2)
  - Atypical femur fracture [Unknown]
  - Low turnover osteopathy [Unknown]
